FAERS Safety Report 16798762 (Version 1)
Quarter: 2019Q4

REPORT INFORMATION
  Report Type: Spontaneous
  Country: US (occurrence: US)
  Receive Date: 20190911
  Receipt Date: 20190911
  Transmission Date: 20200122
  Serious: Yes (Hospitalization)
  Sender: FDA-Public Use
  Company Number: None

PATIENT
  Age: 63 Year
  Sex: Female

DRUGS (9)
  1. PROMETHAZINE [Concomitant]
     Active Substance: PROMETHAZINE HYDROCHLORIDE
  2. FEROSUL [Concomitant]
  3. CIPRO [Concomitant]
     Active Substance: CIPROFLOXACIN HYDROCHLORIDE
  4. DOK [Concomitant]
     Active Substance: DOCUSATE SODIUM
  5. PREDNISONE. [Concomitant]
     Active Substance: PREDNISONE
  6. METHOCARBAM [Concomitant]
     Active Substance: METHOCARBAMOL
  7. OXYCODONE AND ACETAMINOPHEN [Concomitant]
     Active Substance: ACETAMINOPHEN\OXYCODONE HYDROCHLORIDE
  8. CYCLOBENZAPR [Concomitant]
     Active Substance: CYCLOBENZAPRINE
  9. PROLIA [Suspect]
     Active Substance: DENOSUMAB
     Indication: OSTEOPOROSIS
     Dosage: 60 MG SUBCUTANEOUS EVERY 6 MONTHS
     Route: 058
     Dates: start: 20180831

REACTIONS (1)
  - Spinal operation [None]

NARRATIVE: CASE EVENT DATE: 20190911
